FAERS Safety Report 18143556 (Version 3)
Quarter: 2021Q1

REPORT INFORMATION
  Report Type: Spontaneous
  Country: CN (occurrence: CN)
  Receive Date: 20200813
  Receipt Date: 20210220
  Transmission Date: 20210419
  Serious: Yes (Hospitalization, Other)
  Sender: FDA-Public Use
  Company Number: CN-LUPIN PHARMACEUTICALS INC.-2020-04556

PATIENT
  Age: 55 Year
  Sex: Female

DRUGS (3)
  1. CELECOXIB. [Interacting]
     Active Substance: CELECOXIB
     Indication: ARTHRALGIA
     Dosage: 200 MILLIGRAM, QD
     Route: 065
     Dates: start: 2019, end: 201903
  2. CELECOXIB. [Interacting]
     Active Substance: CELECOXIB
     Indication: OSTEOARTHRITIS
     Dosage: UNK
     Route: 065
     Dates: start: 2016, end: 2019
  3. FLUOXETINE [Suspect]
     Active Substance: FLUOXETINE HYDROCHLORIDE
     Indication: DEPRESSION
     Dosage: 20 MILLIGRAM, QD
     Route: 065
     Dates: start: 201812, end: 201903

REACTIONS (6)
  - Drug-induced liver injury [Recovered/Resolved]
  - Cholelithiasis [Recovering/Resolving]
  - Idiosyncratic drug reaction [Recovered/Resolved]
  - Drug interaction [Unknown]
  - Jaundice [Recovered/Resolved]
  - Cholecystitis [Recovered/Resolved]

NARRATIVE: CASE EVENT DATE: 201903
